FAERS Safety Report 9061649 (Version 1)
Quarter: 2013Q1

REPORT INFORMATION
  Report Type: Report from Study
  Country: TW (occurrence: TW)
  Receive Date: 20130204
  Receipt Date: 20130204
  Transmission Date: 20140127
  Serious: Yes (Hospitalization)
  Sender: FDA-Public Use
  Company Number: PHHY2013TW009147

PATIENT
  Age: 69 None
  Sex: Female
  Weight: 45 kg

DRUGS (2)
  1. CERTICAN [Suspect]
     Indication: PROPHYLAXIS AGAINST TRANSPLANT REJECTION
     Dosage: 0.5 MG, UNK
     Route: 048
     Dates: start: 20111123
  2. CICLOSPORIN [Suspect]
     Dosage: UNK UKN, UNK

REACTIONS (2)
  - Urine output decreased [Recovering/Resolving]
  - Blood creatinine increased [Recovering/Resolving]
